FAERS Safety Report 14989500 (Version 1)
Quarter: 2018Q2

REPORT INFORMATION
  Report Type: Spontaneous
  Country: RU (occurrence: RU)
  Receive Date: 20180608
  Receipt Date: 20180608
  Transmission Date: 20180711
  Serious: Yes (Other)
  Sender: FDA-Public Use
  Company Number: RU-BAYER-2018-108527

PATIENT
  Sex: Male

DRUGS (1)
  1. NEXAVAR [Suspect]
     Active Substance: SORAFENIB
     Indication: HEPATOCELLULAR CARCINOMA
     Dosage: 400 MG, BID
     Route: 048
     Dates: start: 201701

REACTIONS (4)
  - General physical health deterioration [None]
  - Hypoventilation [None]
  - Intra-abdominal fluid collection [None]
  - Restrictive pulmonary disease [None]

NARRATIVE: CASE EVENT DATE: 201703
